FAERS Safety Report 9028635 (Version 1)
Quarter: 2013Q1

REPORT INFORMATION
  Report Type: Spontaneous
  Country: US (occurrence: US)
  Receive Date: 20130124
  Receipt Date: 20130124
  Transmission Date: 20140127
  Serious: No
  Sender: FDA-Public Use
  Company Number: US-ASTRAZENECA-2013SE02276

PATIENT
  Age: 53 Year
  Sex: Female
  Weight: 90.3 kg

DRUGS (3)
  1. CRESTOR [Suspect]
     Indication: BLOOD CHOLESTEROL ABNORMAL
     Route: 048
     Dates: end: 20121227
  2. CRESTOR [Suspect]
     Indication: BLOOD CHOLESTEROL ABNORMAL
     Route: 048
  3. DIOVAN HCT [Concomitant]
     Indication: BLOOD PRESSURE ABNORMAL

REACTIONS (4)
  - Malaise [Unknown]
  - Blood cholesterol increased [Not Recovered/Not Resolved]
  - Drug dispensing error [Unknown]
  - Drug dose omission [Unknown]
